FAERS Safety Report 20937049 (Version 1)
Quarter: 2022Q2

REPORT INFORMATION
  Report Type: Spontaneous
  Country: US (occurrence: None)
  Receive Date: 20220609
  Receipt Date: 20220609
  Transmission Date: 20220721
  Serious: No
  Sender: FDA-Public Use
  Company Number: US-ROCHE-2897214

PATIENT
  Sex: Female

DRUGS (1)
  1. ACTEMRA [Suspect]
     Active Substance: TOCILIZUMAB
     Indication: Rheumatoid arthritis
     Dosage: 162 MG EVERY 7  DAYS ONGOING UNKNOWN
     Route: 058
     Dates: start: 20210428

REACTIONS (2)
  - Joint swelling [Unknown]
  - Arthralgia [Unknown]
